FAERS Safety Report 6438989-1 (Version None)
Quarter: 2009Q4

REPORT INFORMATION
  Report Type: 
  Country: None (occurrence: None)
  Receive Date: 20091113
  Receipt Date: 20091103
  Transmission Date: 20100525
  Serious: Yes (Hospitalization, Other)
  Sender: FDA-Public Use
  Company Number: PT-ROCHE-666641

PATIENT
  Sex: Male
  Weight: 60 kg

DRUGS (4)
  1. PEG-INTERFERON ALFA 2A (RO 25-8310) [Suspect]
     Indication: HEPATITIS C
     Dosage: ROUTE:  INJECTION.
     Route: 050
     Dates: start: 20080214, end: 20080424
  2. RIBAVIRIN [Interacting]
     Indication: HEPATITIS C
     Dosage: FREQUENCY:  DAILY.
     Route: 048
     Dates: start: 20080214, end: 20080424
  3. COMBIVIR [Concomitant]
     Dosage: DOSE: 1+1.  FREQUENCY: DAILY.
     Route: 048
     Dates: start: 20001023, end: 20080612
  4. KALETRA [Concomitant]
     Dosage: DOSE: 2+2.  FREQUENCY:  DAILY.
     Route: 048
     Dates: start: 20070712, end: 20080612

REACTIONS (4)
  - ANAEMIA [None]
  - DRUG INTERACTION [None]
  - LEUKOPENIA [None]
  - THROMBOCYTOPENIA [None]
